FAERS Safety Report 15582254 (Version 1)
Quarter: 2018Q4

REPORT INFORMATION
  Report Type: Spontaneous
  Country: US (occurrence: US)
  Receive Date: 20181102
  Receipt Date: 20181102
  Transmission Date: 20190205
  Serious: No
  Sender: FDA-Public Use
  Company Number: US-RADIUS HEALTH INC.-2018US002474

PATIENT
  Age: 75 Year
  Sex: Female

DRUGS (4)
  1. TYMLOS [Suspect]
     Active Substance: ABALOPARATIDE
     Indication: OSTEOPOROSIS POSTMENOPAUSAL
     Dosage: 80 MCG, DAILY
     Route: 058
     Dates: start: 20180816, end: 20180929
  2. TYMLOS [Suspect]
     Active Substance: ABALOPARATIDE
     Indication: PELVIC FRACTURE
  3. TYMLOS [Suspect]
     Active Substance: ABALOPARATIDE
     Indication: HIP FRACTURE
     Dosage: 80 MCG, DAILY
     Route: 058
     Dates: start: 20181015
  4. TYMLOS [Suspect]
     Active Substance: ABALOPARATIDE
     Indication: OSTEOPOROSIS

REACTIONS (5)
  - Off label use [Unknown]
  - Product storage error [Unknown]
  - Joint stiffness [Unknown]
  - Muscle tightness [Unknown]
  - Gait disturbance [Unknown]

NARRATIVE: CASE EVENT DATE: 201808
